FAERS Safety Report 19863690 (Version 1)
Quarter: 2021Q3

REPORT INFORMATION
  Report Type: Spontaneous
  Country: US (occurrence: US)
  Receive Date: 20210921
  Receipt Date: 20210921
  Transmission Date: 20211014
  Serious: Yes (Death, Other)
  Sender: FDA-Public Use
  Company Number: US-PERRIGO-21US025814

PATIENT
  Age: 59 Year
  Sex: Male

DRUGS (8)
  1. RANITIDINE HYDROCHLORIDE (852) [Suspect]
     Active Substance: RANITIDINE HYDROCHLORIDE
     Indication: GASTRIC ULCER
  2. RANITIDINE HYDROCHLORIDE (852) [Suspect]
     Active Substance: RANITIDINE HYDROCHLORIDE
     Indication: INTESTINAL ULCER
  3. RANITIDINE HYDROCHLORIDE (852) [Suspect]
     Active Substance: RANITIDINE HYDROCHLORIDE
     Indication: DYSPEPSIA
  4. RANITIDINE HYDROCHLORIDE (852) [Suspect]
     Active Substance: RANITIDINE HYDROCHLORIDE
     Indication: EROSIVE OESOPHAGITIS
  5. RANITIDINE HYDROCHLORIDE (852) [Suspect]
     Active Substance: RANITIDINE HYDROCHLORIDE
     Indication: HYPERCHLORHYDRIA
  6. RANITIDINE HYDROCHLORIDE (852) [Suspect]
     Active Substance: RANITIDINE HYDROCHLORIDE
     Indication: ABDOMINAL DISCOMFORT
  7. RANITIDINE HYDROCHLORIDE (852) [Suspect]
     Active Substance: RANITIDINE HYDROCHLORIDE
     Indication: DYSPEPSIA
  8. RANITIDINE HYDROCHLORIDE (852) [Suspect]
     Active Substance: RANITIDINE HYDROCHLORIDE
     Indication: DYSPEPSIA
     Dosage: DOSE FREQUENCY: DAILY
     Route: 048
     Dates: start: 200901, end: 201907

REACTIONS (1)
  - Pancreatic carcinoma [Fatal]

NARRATIVE: CASE EVENT DATE: 20190617
